FAERS Safety Report 8851842 (Version 3)
Quarter: 2012Q4

REPORT INFORMATION
  Report Type: 
  Country: JP (occurrence: JP)
  Receive Date: 20121022
  Receipt Date: 20121116
  Transmission Date: 20130627
  Serious: Yes (Death)
  Sender: FDA-Public Use
  Company Number: JP-MERCK-1210JPN006091

PATIENT
  Age: 35 Year
  Sex: Male

DRUGS (5)
  1. REFLEX [Suspect]
     Dosage: 15 mg, UNK
     Route: 048
     Dates: start: 200606
  2. DULOXETINE HYDROCHLORIDE [Concomitant]
     Dosage: 30 mg, qd, Oral
     Route: 048
  3. DULOXETINE HYDROCHLORIDE [Concomitant]
     Dosage: 60 mg, qd, Oral
     Dates: start: 20110620
  4. ETIZOLAM [Concomitant]
     Dosage: 3 mg, qd, oral
     Route: 048
  5. FLUNITRAZEPAM [Concomitant]
     Dosage: 4 mg, UNK

REACTIONS (1)
  - Serotonin syndrome [Fatal]
